FAERS Safety Report 13744395 (Version 1)
Quarter: 2017Q3

REPORT INFORMATION
  Report Type: Spontaneous
  Country: US (occurrence: US)
  Receive Date: 20170712
  Receipt Date: 20170712
  Transmission Date: 20171127
  Serious: Yes (Hospitalization, Other)
  Sender: FDA-Public Use
  Company Number: US-TORRENT-00003171

PATIENT
  Age: 57 Year
  Sex: Female

DRUGS (6)
  1. MEMANTINE HCL [Suspect]
     Active Substance: MEMANTINE
  2. TRAZODONE [Suspect]
     Active Substance: TRAZODONE HYDROCHLORIDE
  3. PERPHENAZINE. [Suspect]
     Active Substance: PERPHENAZINE
  4. BUPROPION. [Suspect]
     Active Substance: BUPROPION
  5. AMANTADINE. [Suspect]
     Active Substance: AMANTADINE HYDROCHLORIDE
  6. CLONAZEPAM. [Suspect]
     Active Substance: CLONAZEPAM

REACTIONS (2)
  - Urinary tract infection [Unknown]
  - Encephalopathy [Recovered/Resolved]
